FAERS Safety Report 7934516-8 (Version None)
Quarter: 2011Q4

REPORT INFORMATION
  Report Type: 
  Country: None (occurrence: None)
  Receive Date: 20111122
  Receipt Date: 20111114
  Transmission Date: 20120403
  Serious: Yes (Hospitalization)
  Sender: FDA-Public Use
  Company Number: FR-ELI_LILLY_AND_COMPANY-FR_041105329

PATIENT
  Sex: Female
  Weight: 17.6 kg

DRUGS (1)
  1. SOMATROPIN [Suspect]
     Indication: TURNER'S SYNDROME
     Dosage: 0.935 MG, DAILY (1/D)
     Route: 058
     Dates: start: 20030422, end: 20041120

REACTIONS (1)
  - TYPE 1 DIABETES MELLITUS [None]
